FAERS Safety Report 4803695-3 (Version None)
Quarter: 2005Q4

REPORT INFORMATION
  Report Type: 
  Country: None (occurrence: None)
  Receive Date: 20051014
  Receipt Date: 20050929
  Transmission Date: 20060501
  Serious: Yes (Death)
  Sender: FDA-Public Use
  Company Number: 032-15

PATIENT
  Age: 64 Year
  Sex: Male

DRUGS (4)
  1. TEVETEN [Suspect]
     Indication: HYPERTENSION
     Dosage: 600 MG PO
     Route: 048
     Dates: start: 20050214, end: 20050513
  2. LANOXIN [Concomitant]
  3. ACENOCOUMAROL [Concomitant]
  4. OMEPRAZOLE [Concomitant]

REACTIONS (2)
  - SUDDEN DEATH [None]
  - VENTRICULAR FIBRILLATION [None]
